FAERS Safety Report 7474273-5 (Version None)
Quarter: 2011Q2

REPORT INFORMATION
  Report Type: 
  Country: None (occurrence: None)
  Receive Date: 20110511
  Receipt Date: 20110505
  Transmission Date: 20111010
  Serious: Yes (Hospitalization, Other)
  Sender: FDA-Public Use
  Company Number: US-GENZYME-200837500NA

PATIENT
  Sex: Female
  Weight: 69 kg

DRUGS (19)
  1. SOLUMETROL [Concomitant]
     Indication: MULTIPLE SCLEROSIS
     Dosage: UNK
     Route: 042
     Dates: start: 20060101, end: 20060101
  2. DAPSONE [Concomitant]
     Indication: PROPHYLAXIS
     Dosage: 6 MONTHS AFTER CAMPATH CYCLE 1
     Dates: start: 20060101, end: 20070101
  3. KEPPRA [Concomitant]
     Dosage: 375 MG, BID
     Dates: start: 20080114
  4. METHOTREXATE [Concomitant]
     Indication: PRODUCT USED FOR UNKNOWN INDICATION
  5. CAMPATH [Suspect]
     Indication: MULTIPLE SCLEROSIS
     Dosage: 60 MG, UNK
     Route: 065
     Dates: start: 20061201, end: 20061201
  6. ACYCLOVIR [Concomitant]
     Indication: INFECTION PROPHYLAXIS
     Dosage: AFTER CAMPATH CYCLE 1
     Dates: start: 20060101, end: 20070101
  7. CAMPATH [Suspect]
     Dosage: 30 MG, UNK
     Route: 065
     Dates: start: 20071203, end: 20071205
  8. WELLBUTRIN [Concomitant]
     Indication: PRODUCT USED FOR UNKNOWN INDICATION
     Dosage: 75 MG QD
  9. DAPSONE [Concomitant]
     Dosage: UNK
     Dates: start: 20070101, end: 20080101
  10. ZONISAMIDE [Concomitant]
     Dosage: 600 MG, UNK
     Dates: start: 20071214
  11. GLATIRAMER ACETATE [Concomitant]
     Indication: PRODUCT USED FOR UNKNOWN INDICATION
     Dosage: UNK
     Dates: end: 20050101
  12. ZONISAMIDE [Concomitant]
     Dosage: 500 MG, UNK
  13. ZONISAMIDE [Concomitant]
     Indication: PRODUCT USED FOR UNKNOWN INDICATION
     Dosage: 500 MG QD
     Dates: end: 20071214
  14. KEPPRA [Concomitant]
     Indication: PRODUCT USED FOR UNKNOWN INDICATION
     Dosage: 750 MG BID
     Dates: end: 20080114
  15. CYMBALTA [Concomitant]
     Dosage: 60 MG, BID
     Dates: start: 20080601
  16. CELEXA [Concomitant]
     Indication: PRODUCT USED FOR UNKNOWN INDICATION
     Dosage: 40 MG QD
  17. ACYCLOVIR [Concomitant]
     Indication: INFECTION PROPHYLAXIS
     Dosage: AFTER CAMPATH CYCLE 2
  18. CYMBALTA [Concomitant]
     Indication: PRODUCT USED FOR UNKNOWN INDICATION
     Dosage: 60 MG QD
     Dates: start: 20080301, end: 20080401
  19. SOLU-MEDROL [Concomitant]
     Dosage: UNK
     Dates: start: 20070101, end: 20070101

REACTIONS (7)
  - SUICIDAL IDEATION [None]
  - ANXIETY [None]
  - STATUS EPILEPTICUS [None]
  - HISTOPLASMOSIS DISSEMINATED [None]
  - DEPRESSION [None]
  - POST-TRAUMATIC STRESS DISORDER [None]
  - LYMPHADENITIS [None]
